FAERS Safety Report 6630290-6 (Version None)
Quarter: 2010Q1

REPORT INFORMATION
  Report Type: 
  Country: None (occurrence: None)
  Receive Date: 20100311
  Receipt Date: 20100225
  Transmission Date: 20100710
  Serious: Yes (Hospitalization, Other)
  Sender: FDA-Public Use
  Company Number: PHEH2006US13888

PATIENT
  Sex: Female
  Weight: 82.54 kg

DRUGS (32)
  1. ESTRADERM [Suspect]
     Indication: MENOPAUSE
     Dosage: 0.1 MG, UNK
     Route: 062
     Dates: start: 19980101, end: 20000101
  2. ESTRADERM [Suspect]
     Indication: CARDIOVASCULAR EVENT PROPHYLAXIS
  3. ESTRADERM [Suspect]
     Indication: UTERINE CANCER
  4. VIVELLE-DOT [Suspect]
     Indication: MENOPAUSE
     Dosage: 0.1 MG, UNK
  5. VIVELLE [Suspect]
     Indication: MENOPAUSE
     Dosage: 0.1 MG, UNK
     Dates: start: 19970401, end: 19970401
  6. VIVELLE [Suspect]
     Indication: CARDIOVASCULAR EVENT PROPHYLAXIS
  7. PROVERA [Suspect]
     Indication: MENOPAUSE
     Dosage: 5 MG, UNK
     Dates: start: 19880101, end: 19890101
  8. PROVERA [Suspect]
     Indication: CARDIOVASCULAR EVENT PROPHYLAXIS
     Dosage: 5 MG, UNK
     Dates: start: 19940101, end: 20000101
  9. TRICOR [Concomitant]
     Indication: HYPERCHOLESTEROLAEMIA
     Dosage: 145 MG, QD
  10. COUMADIN [Concomitant]
     Indication: ATRIAL FIBRILLATION
     Dosage: 1/2 TAB DAILY
  11. STARLIX [Concomitant]
     Indication: DIABETES MELLITUS
     Dosage: 60 MG, TID
     Route: 048
     Dates: start: 20000901
  12. GLUCOPHAGE [Concomitant]
     Indication: DIABETES MELLITUS
     Dosage: 500 MG, BID
     Route: 048
     Dates: start: 20000901
  13. METOPROLOL [Concomitant]
     Indication: HYPERTENSION
     Dosage: 50 MG, BID
     Dates: start: 20010101
  14. LIPITOR [Concomitant]
     Dosage: 10 MG, QD
     Route: 048
  15. SYNTHROID [Concomitant]
     Dosage: 100 UG, QD
     Route: 048
  16. PAXIL [Concomitant]
     Indication: HOT FLUSH
     Dosage: 30 MG, QD
     Route: 048
     Dates: start: 20020101
  17. LOTENSIN HCT [Concomitant]
     Dosage: 10MG-12.5MG DAILY
     Route: 048
  18. CALCIUM W/MAGNESIUM [Concomitant]
  19. LUMIGAN [Concomitant]
     Indication: GLAUCOMA
     Dosage: TWICE DAILY
  20. POTASSIUM CHLORIDE [Concomitant]
     Dosage: 20 MEQ, UNK
  21. RESTORIL [Concomitant]
     Dosage: 30 MG, UNK
  22. MOBIC [Concomitant]
     Dosage: 15 MG, UNK
  23. VIOXX [Concomitant]
     Dosage: 25 MG, UNK
     Dates: end: 20040101
  24. AMBIEN [Concomitant]
     Dosage: 5 MG PRN HS
     Dates: end: 20050101
  25. ZOCOR [Concomitant]
     Dosage: 20 MG, QD
     Route: 048
     Dates: end: 20040101
  26. TEMAZEPAM [Concomitant]
     Dosage: 30 MG, QHS
     Route: 048
     Dates: end: 20040101
  27. NORVASC [Concomitant]
     Dosage: 5 MG, QD
     Route: 048
  28. XANAX [Concomitant]
  29. PROCRIT                            /00909301/ [Concomitant]
     Dosage: 40000 U, UNK
     Route: 058
  30. PROZAC [Concomitant]
     Indication: DEPRESSION
     Dosage: 20 MG, 2 CAPS DAILY
     Route: 048
     Dates: start: 20061222, end: 20070201
  31. TORSEMIDE [Concomitant]
  32. ACETAMINOPHEN AND HYDROCODONE BITARTRATE [Concomitant]

REACTIONS (61)
  - AMENORRHOEA [None]
  - ARTHRITIS [None]
  - ASTHENIA [None]
  - ATRIAL FIBRILLATION [None]
  - BACK PAIN [None]
  - BASEDOW'S DISEASE [None]
  - BIOPSY ENDOMETRIUM [None]
  - BLOOD CHOLESTEROL INCREASED [None]
  - BLOOD TRIGLYCERIDES INCREASED [None]
  - BREAST CALCIFICATIONS [None]
  - BREAST CANCER [None]
  - BREAST MASS [None]
  - BREAST RECONSTRUCTION [None]
  - BREATH SOUNDS ABNORMAL [None]
  - CARDIAC FAILURE CONGESTIVE [None]
  - CARDIAC FLUTTER [None]
  - CARDIAC PACEMAKER INSERTION [None]
  - CARDIOMEGALY [None]
  - CARDIOVERSION [None]
  - CATHETERISATION CARDIAC [None]
  - CHEST PAIN [None]
  - CORONARY ARTERY OCCLUSION [None]
  - DIABETES MELLITUS [None]
  - DYSLIPIDAEMIA [None]
  - DYSPNOEA [None]
  - ELECTROCARDIOGRAM ABNORMAL [None]
  - ENDOMETRIAL HYPERPLASIA [None]
  - FIBROCYSTIC BREAST DISEASE [None]
  - GOITRE [None]
  - HAEMATURIA [None]
  - HEART RATE IRREGULAR [None]
  - HOT FLUSH [None]
  - HYPERTENSION [None]
  - HYPERTHYROIDISM [None]
  - HYPERTONIC BLADDER [None]
  - INDURATION [None]
  - LIVER DISORDER [None]
  - LUMBAR SPINAL STENOSIS [None]
  - MAMMOGRAM [None]
  - MAMMOPLASTY [None]
  - MASTECTOMY [None]
  - MUSCULAR WEAKNESS [None]
  - NERVE COMPRESSION [None]
  - NERVOUSNESS [None]
  - NEUROPATHY PERIPHERAL [None]
  - OBESITY [None]
  - PAIN IN EXTREMITY [None]
  - PERONEAL NERVE PALSY [None]
  - PLEURAL EFFUSION [None]
  - POLLAKIURIA [None]
  - POSTMENOPAUSAL HAEMORRHAGE [None]
  - RALES [None]
  - SENSORY LOSS [None]
  - SICK SINUS SYNDROME [None]
  - STRESS URINARY INCONTINENCE [None]
  - THYROID FUNCTION TEST ABNORMAL [None]
  - UTERINE DISORDER [None]
  - UTERINE HAEMORRHAGE [None]
  - UTERINE POLYP [None]
  - VULVOVAGINAL DRYNESS [None]
  - WEIGHT DECREASED [None]
